FAERS Safety Report 25317919 (Version 3)
Quarter: 2025Q3

REPORT INFORMATION
  Report Type: Report from Study
  Country: US (occurrence: US)
  Receive Date: 20250515
  Receipt Date: 20250905
  Transmission Date: 20251021
  Serious: Yes (Other)
  Sender: ABBVIE
  Company Number: US-ABBVIE-5983626

PATIENT
  Age: 51 Year
  Sex: Male
  Weight: 68 kg

DRUGS (12)
  1. HUMIRA [Suspect]
     Active Substance: ADALIMUMAB
     Indication: Ankylosing spondylitis
     Route: 058
     Dates: start: 20140101, end: 2019
  2. HUMIRA [Suspect]
     Active Substance: ADALIMUMAB
     Route: 058
     Dates: start: 202204
  3. HUMIRA [Suspect]
     Active Substance: ADALIMUMAB
     Route: 058
     Dates: start: 2022, end: 2022
  4. LEXAPRO [Concomitant]
     Active Substance: ESCITALOPRAM OXALATE
     Indication: Anxiety
  5. VALIUM [Concomitant]
     Active Substance: DIAZEPAM
     Indication: Muscle spasms
  6. LISINOPRIL [Concomitant]
     Active Substance: LISINOPRIL
     Indication: Hypertension
  7. BUDESONIDE [Concomitant]
     Active Substance: BUDESONIDE
     Indication: Skin disorder
  8. OXYCODONE [Concomitant]
     Active Substance: OXYCODONE
     Indication: Pain
  9. CLOBETASOL [Concomitant]
     Active Substance: CLOBETASOL
     Indication: Skin disorder
  10. MELOXICAM [Concomitant]
     Active Substance: MELOXICAM
     Indication: Antiinflammatory therapy
  11. COSENTYX [Suspect]
     Active Substance: SECUKINUMAB
     Indication: Product used for unknown indication
     Route: 065
     Dates: start: 2019
  12. CIMZIA [Suspect]
     Active Substance: CERTOLIZUMAB PEGOL
     Indication: Product used for unknown indication
     Route: 065

REACTIONS (27)
  - Shoulder fracture [Not Recovered/Not Resolved]
  - Arthralgia [Not Recovered/Not Resolved]
  - Psoriasis [Not Recovered/Not Resolved]
  - Arthralgia [Recovered/Resolved]
  - Hypersomnia [Unknown]
  - Fatigue [Recovered/Resolved]
  - Fall [Recovered/Resolved]
  - Rash papular [Unknown]
  - Stress [Unknown]
  - Pneumonia [Recovered/Resolved]
  - Localised infection [Recovered/Resolved]
  - Pain [Recovering/Resolving]
  - Dry skin [Recovering/Resolving]
  - Skin exfoliation [Recovering/Resolving]
  - Drug interaction [Unknown]
  - Alopecia [Unknown]
  - Influenza like illness [Recovered/Resolved]
  - Ankylosing spondylitis [Unknown]
  - Dry skin [Unknown]
  - Skin fissures [Unknown]
  - Arthralgia [Recovering/Resolving]
  - Fatigue [Not Recovered/Not Resolved]
  - Eczema [Unknown]
  - Skin exfoliation [Unknown]
  - Rash [Unknown]
  - COVID-19 [Unknown]
  - Illness [Unknown]

NARRATIVE: CASE EVENT DATE: 20150101
